FAERS Safety Report 13739786 (Version 1)
Quarter: 2017Q3

REPORT INFORMATION
  Report Type: Spontaneous
  Country: JP (occurrence: JP)
  Receive Date: 20170710
  Receipt Date: 20170710
  Transmission Date: 20171127
  Serious: Yes (Hospitalization)
  Sender: FDA-Public Use
  Company Number: PHHY1999JP001816

PATIENT
  Age: 6 Year
  Sex: Male

DRUGS (8)
  1. KISARTAN [Concomitant]
     Dates: start: 19990622
  2. UNOPROSTONE ISOPROPYL [Concomitant]
     Active Substance: UNOPROSTONE ISOPROPYL
     Dates: start: 19981117, end: 19990621
  3. LATANOPROST. [Concomitant]
     Active Substance: LATANOPROST
     Dates: start: 19990622, end: 19990624
  4. CEFDINIR. [Concomitant]
     Active Substance: CEFDINIR
     Dates: start: 19990624, end: 19990624
  5. KISARTAN [Concomitant]
     Dates: start: 19990628
  6. MIKELAN [Suspect]
     Active Substance: CARTEOLOL HYDROCHLORIDE
     Dosage: 4 DF, UNK
     Route: 047
     Dates: start: 19990628
  7. MIKELAN [Suspect]
     Active Substance: CARTEOLOL HYDROCHLORIDE
     Dosage: 4 DF, UNK
     Route: 047
     Dates: start: 19970107, end: 19990624
  8. LATANOPROST. [Concomitant]
     Active Substance: LATANOPROST
     Dates: start: 19990628

REACTIONS (10)
  - Loss of consciousness [Unknown]
  - Upper respiratory tract inflammation [Unknown]
  - Hypotension [Unknown]
  - Hypoglycaemic coma [Unknown]
  - Bradycardia [Recovered/Resolved]
  - Pyrexia [Unknown]
  - Hypertension [Recovered/Resolved]
  - Incoherent [Unknown]
  - Hypoglycaemia [Recovered/Resolved]
  - Unresponsive to stimuli [Unknown]

NARRATIVE: CASE EVENT DATE: 19990624
